FAERS Safety Report 4606729-4 (Version None)
Quarter: 2005Q1

REPORT INFORMATION
  Report Type: 
  Country: None (occurrence: None)
  Receive Date: 20050116
  Receipt Date: 20041124
  Transmission Date: 20050727
  Serious: Yes (Other)
  Sender: FDA-Public Use
  Company Number: HQWYE681524NOV04

PATIENT
  Sex: 0

DRUGS (2)
  1. EFFEXOR [Suspect]
     Indication: DEPRESSION
  2. RITUXAN [Suspect]
     Indication: LYMPHOMA

REACTIONS (1)
  - HYPERBILIRUBINAEMIA [None]
